FAERS Safety Report 20976325 (Version 1)
Quarter: 2022Q2

REPORT INFORMATION
  Report Type: Spontaneous
  Country: CN (occurrence: CN)
  Receive Date: 20220617
  Receipt Date: 20220617
  Transmission Date: 20220721
  Serious: Yes (Other)
  Sender: FDA-Public Use
  Company Number: None

PATIENT
  Age: 34 Year
  Sex: Male
  Weight: 60 kg

DRUGS (1)
  1. CYCLOPHOSPHAMIDE [Suspect]
     Active Substance: CYCLOPHOSPHAMIDE
     Indication: Acute myeloid leukaemia
     Dosage: 2.66 G, QD
     Route: 041
     Dates: start: 20220512, end: 20220513

REACTIONS (2)
  - Urinary retention [Unknown]
  - Urinary tract pain [Recovering/Resolving]

NARRATIVE: CASE EVENT DATE: 20220527
